FAERS Safety Report 7615647-9 (Version None)
Quarter: 2011Q3

REPORT INFORMATION
  Report Type: 
  Country: None (occurrence: None)
  Receive Date: 20110715
  Receipt Date: 20110715
  Transmission Date: 20111222
  Serious: Yes (Death)
  Sender: FDA-Public Use
  Company Number: None

PATIENT
  Age: 61 Year
  Sex: Female

DRUGS (8)
  1. DEXAMETHASONE [Concomitant]
  2. REVLIMID [Suspect]
     Indication: MULTIPLE MYELOMA
     Dosage: 10MG DAILY ORALLY
     Route: 048
     Dates: start: 20101101, end: 20110301
  3. ALPRAZOLAM [Concomitant]
  4. FENTANYL [Concomitant]
  5. ZOCOR [Concomitant]
  6. NORCO [Concomitant]
  7. DIFLUCAN [Concomitant]
  8. AMITRIPTYLINE HCL [Concomitant]

REACTIONS (2)
  - CONDITION AGGRAVATED [None]
  - MULTIPLE MYELOMA [None]
